FAERS Safety Report 18935907 (Version 5)
Quarter: 2022Q1

REPORT INFORMATION
  Report Type: Report from Study
  Country: CO (occurrence: CO)
  Receive Date: 20210225
  Receipt Date: 20220329
  Transmission Date: 20220424
  Serious: Yes (Other)
  Sender: FDA-Public Use
  Company Number: CO-ABBVIE-21K-036-3786438-00

PATIENT
  Age: 32 Year
  Sex: Male
  Weight: 63 kg

DRUGS (3)
  1. HUMIRA [Suspect]
     Active Substance: ADALIMUMAB
     Indication: Ankylosing spondylitis
     Route: 058
     Dates: start: 20121001
  2. HUMIRA [Suspect]
     Active Substance: ADALIMUMAB
     Indication: Ankylosing spondylitis
     Route: 058
  3. RISPERIDONE [Suspect]
     Active Substance: RISPERIDONE
     Indication: Schizophrenia
     Route: 065
     Dates: start: 2012

REACTIONS (13)
  - Schizophrenia [Recovering/Resolving]
  - Tooth disorder [Recovering/Resolving]
  - Amnesia [Not Recovered/Not Resolved]
  - Cardiac disorder [Recovered/Resolved]
  - Cerebral disorder [Recovered/Resolved]
  - Somnolence [Recovered/Resolved]
  - Noninfective gingivitis [Recovering/Resolving]
  - Gingival pain [Recovering/Resolving]
  - Pain [Recovered/Resolved]
  - Fatigue [Recovering/Resolving]
  - Arthralgia [Recovering/Resolving]
  - Urinary tract infection [Recovered/Resolved]
  - Urinary tract discomfort [Recovered/Resolved]

NARRATIVE: CASE EVENT DATE: 20220201
